FAERS Safety Report 9995346 (Version 1)
Quarter: 2014Q1

REPORT INFORMATION
  Report Type: Spontaneous
  Country: US (occurrence: None)
  Receive Date: 20140307
  Receipt Date: 20140307
  Transmission Date: 20141002
  Serious: Yes (Life-Threatening, Other)
  Sender: FDA-Public Use
  Company Number: None

PATIENT
  Age: 46 Year
  Sex: Female
  Weight: 51.71 kg

DRUGS (1)
  1. FERAHEME [Suspect]
     Indication: BLOOD IRON DECREASED
     Dosage: 510 MG JUST ONCE INTO A VEIN
     Route: 042
     Dates: start: 20140305, end: 20140305

REACTIONS (3)
  - Palpitations [None]
  - Hypersensitivity [None]
  - Infusion related reaction [None]
